FAERS Safety Report 17260461 (Version 2)
Quarter: 2020Q1

REPORT INFORMATION
  Report Type: Report from Study
  Country: None (occurrence: US)
  Receive Date: 20200112
  Receipt Date: 20200117
  Transmission Date: 20200409
  Serious: Yes (Hospitalization, Other)
  Sender: FDA-Public Use
  Company Number: US-ABBVIE-20P-163-3227599-00

PATIENT
  Sex: Male

DRUGS (1)
  1. IMBRUVICA [Suspect]
     Active Substance: IBRUTINIB
     Indication: CHRONIC LYMPHOCYTIC LEUKAEMIA
     Route: 048
     Dates: start: 20200101

REACTIONS (5)
  - Blood creatinine increased [Unknown]
  - Cystitis [Unknown]
  - Renal vascular thrombosis [Unknown]
  - Haemorrhage [Unknown]
  - White blood cell count abnormal [Unknown]
